FAERS Safety Report 14704738 (Version 4)
Quarter: 2018Q2

REPORT INFORMATION
  Report Type: Report from Study
  Country: US (occurrence: US)
  Receive Date: 20180402
  Receipt Date: 20180508
  Transmission Date: 20180711
  Serious: No
  Sender: FDA-Public Use
  Company Number: US-TAKEDA-2018TUS007770

PATIENT
  Age: 60 Year
  Sex: Male

DRUGS (1)
  1. PONATINIB [Suspect]
     Active Substance: PONATINIB
     Indication: MYELOID LEUKAEMIA
     Dosage: 45 MG, QD
     Route: 048
     Dates: start: 20180326

REACTIONS (12)
  - Eye allergy [Unknown]
  - Blood creatinine increased [Unknown]
  - Eye haemorrhage [Unknown]
  - Memory impairment [Unknown]
  - White blood cell count increased [Unknown]
  - Flank pain [Unknown]
  - Arthralgia [Unknown]
  - Diarrhoea [Recovered/Resolved]
  - Platelet count decreased [Unknown]
  - Splenomegaly [Recovering/Resolving]
  - Thrombosis [Unknown]
  - Fatigue [Unknown]

NARRATIVE: CASE EVENT DATE: 20180322
